FAERS Safety Report 8573926-5 (Version None)
Quarter: 2012Q2

REPORT INFORMATION
  Report Type: 
  Country: None (occurrence: None)
  Receive Date: 20120423
  Receipt Date: 20100128
  Transmission Date: 20120825
  Serious: Yes (Other)
  Sender: FDA-Public Use
  Company Number: PHEH2009US16358

PATIENT
  Age: 53 Year
  Sex: Male

DRUGS (3)
  1. EXJADE [Suspect]
     Indication: HAEMOCHROMATOSIS
     Dosage: 1000 MG, DAILY, ORAL : 500 - 1000 MG, DAILY, ORAL
     Route: 048
     Dates: start: 20091123
  2. EXJADE [Suspect]
     Indication: HAEMOCHROMATOSIS
     Dosage: 1000 MG, DAILY, ORAL : 500 - 1000 MG, DAILY, ORAL
     Route: 048
     Dates: start: 20090723, end: 20091013
  3. DIURETICS (NO INGREDIENTS/SUBSTANCES) [Concomitant]

REACTIONS (4)
  - RENAL FUNCTION TEST ABNORMAL [None]
  - RENAL FAILURE ACUTE [None]
  - OEDEMA [None]
  - LETHARGY [None]
